FAERS Safety Report 6340864-8 (Version None)
Quarter: 2009Q3

REPORT INFORMATION
  Report Type: 
  Country: None (occurrence: None)
  Receive Date: 20090904
  Receipt Date: 20090823
  Transmission Date: 20100115
  Serious: Yes (Other)
  Sender: FDA-Public Use
  Company Number: US-PFIZER INC-2009261188

PATIENT
  Sex: Male
  Weight: 89.796 kg

DRUGS (4)
  1. DETROL LA [Suspect]
     Indication: URINE FLOW DECREASED
     Dosage: 2 MG, 1X/DAY
     Route: 048
     Dates: start: 20090724, end: 20090822
  2. DETROL LA [Suspect]
     Indication: PROSTATIC DISORDER
  3. TOPROL-XL [Concomitant]
     Indication: BLOOD PRESSURE INCREASED
     Dosage: UNK
     Route: 048
     Dates: start: 19990101
  4. LIPITOR [Concomitant]
     Indication: BLOOD CHOLESTEROL INCREASED
     Dosage: UNK
     Route: 048
     Dates: start: 19990101

REACTIONS (5)
  - DRUG INEFFECTIVE [None]
  - FLUID RETENTION [None]
  - GYNAECOMASTIA [None]
  - HYPERTENSION [None]
  - WEIGHT INCREASED [None]
